FAERS Safety Report 6875630-8 (Version None)
Quarter: 2010Q3

REPORT INFORMATION
  Report Type: 
  Country: None (occurrence: None)
  Receive Date: 20100727
  Receipt Date: 20100722
  Transmission Date: 20110219
  Serious: Yes (Other)
  Sender: FDA-Public Use
  Company Number: US-ASTRAZENECA-2009UW19098

PATIENT
  Age: 30 Year
  Sex: Male
  Weight: 108.4 kg

DRUGS (31)
  1. SEROQUEL [Suspect]
     Indication: SCHIZOAFFECTIVE DISORDER
     Route: 048
     Dates: start: 19920101, end: 20080601
  2. SEROQUEL [Suspect]
     Indication: AFFECTIVE DISORDER
     Route: 048
     Dates: start: 19920101, end: 20080601
  3. SEROQUEL [Suspect]
     Route: 048
     Dates: start: 20010426
  4. SEROQUEL [Suspect]
     Route: 048
     Dates: start: 20010426
  5. SEROQUEL [Suspect]
     Dosage: 200 MG BID AND HS
     Route: 048
     Dates: start: 20020901
  6. SEROQUEL [Suspect]
     Dosage: 200 MG BID AND HS
     Route: 048
     Dates: start: 20020901
  7. SEROQUEL [Suspect]
     Dosage: 300 MG BID AND HS
     Route: 048
     Dates: start: 20021101
  8. SEROQUEL [Suspect]
     Dosage: 300 MG BID AND HS
     Route: 048
     Dates: start: 20021101
  9. SEROQUEL [Suspect]
     Route: 048
     Dates: start: 20070801
  10. SEROQUEL [Suspect]
     Route: 048
     Dates: start: 20070801
  11. ABILIFY [Concomitant]
  12. CLOZARIL [Concomitant]
     Dosage: 100 MG 2 AT AM AND 3 AT HS
     Dates: start: 20010426
  13. HALDOL [Concomitant]
     Route: 048
     Dates: start: 20050701
  14. HALDOL [Concomitant]
     Dosage: 5 MG NOON
     Route: 048
     Dates: start: 20050701
  15. RISPERDAL [Concomitant]
  16. THORAZINE [Concomitant]
  17. ZYPREXA [Concomitant]
  18. SYMBYAX [Concomitant]
  19. DILANTIN [Concomitant]
     Route: 048
     Dates: start: 20050701
  20. DEPAKOTE ER [Concomitant]
     Dates: start: 20010426
  21. DEPAKOTE ER [Concomitant]
     Route: 048
     Dates: start: 20050701
  22. DEPAKOTE ER [Concomitant]
     Dosage: 500 MG 3 TABS Q EVENING
     Route: 048
     Dates: start: 20070801
  23. ATIVAN [Concomitant]
     Indication: AGITATION
     Route: 048
  24. ATIVAN [Concomitant]
     Dosage: 0.5 MG TID AND QID
     Route: 048
     Dates: start: 20070801
  25. AMBIEN [Concomitant]
     Route: 048
     Dates: start: 20070801
  26. LITHIUM [Concomitant]
     Dates: start: 20041201
  27. ACTOS [Concomitant]
     Route: 048
     Dates: start: 20090626
  28. FUROSEMIDE [Concomitant]
     Route: 048
     Dates: start: 20090626
  29. MORPHINE [Concomitant]
     Dosage: 2 ML
     Route: 042
     Dates: start: 20100101
  30. PROPRANOLOL [Concomitant]
     Dates: start: 20010426
  31. LITHIUM CARBONATE [Concomitant]
     Dosage: 300 MG , 2 BID
     Dates: start: 20010426

REACTIONS (10)
  - ACCIDENTAL OVERDOSE [None]
  - CONVULSION [None]
  - DIABETES MELLITUS INADEQUATE CONTROL [None]
  - DIABETIC NEPHROPATHY [None]
  - DIABETIC NEUROPATHY [None]
  - NEUROPATHY PERIPHERAL [None]
  - OBESITY [None]
  - RENAL FAILURE [None]
  - RENAL FAILURE CHRONIC [None]
  - TYPE 2 DIABETES MELLITUS [None]
